FAERS Safety Report 24029538 (Version 1)
Quarter: 2024Q2

REPORT INFORMATION
  Report Type: Spontaneous
  Country: DE (occurrence: DE)
  Receive Date: 20240628
  Receipt Date: 20240628
  Transmission Date: 20240716
  Serious: Yes (Hospitalization, Other)
  Sender: FDA-Public Use
  Company Number: DE-SK LIFE SCIENCE, INC-SKPVG-2024-001322

PATIENT

DRUGS (18)
  1. XCOPRI [Suspect]
     Active Substance: CENOBAMATE
     Indication: Partial seizures
     Dosage: 12.5 MILLIGRAM, QD
     Route: 065
     Dates: start: 2022
  2. XCOPRI [Suspect]
     Active Substance: CENOBAMATE
     Dosage: 100 MILLIGRAM, QD
     Route: 065
  3. XCOPRI [Suspect]
     Active Substance: CENOBAMATE
     Dosage: 200 MILLIGRAM, QD
     Route: 065
     Dates: start: 202208
  4. XCOPRI [Suspect]
     Active Substance: CENOBAMATE
     Dosage: 250 MILLIGRAM, QD
     Route: 065
     Dates: start: 202210
  5. XCOPRI [Suspect]
     Active Substance: CENOBAMATE
     Dosage: 1600 MILLIGRAM, QD
     Route: 065
     Dates: start: 202210, end: 202211
  6. XCOPRI [Suspect]
     Active Substance: CENOBAMATE
     Dosage: 300 MILLIGRAM, QD
     Route: 065
     Dates: start: 202211
  7. XCOPRI [Suspect]
     Active Substance: CENOBAMATE
     Dosage: 400 MILLIGRAM, QD
     Route: 065
     Dates: start: 202212
  8. XCOPRI [Suspect]
     Active Substance: CENOBAMATE
     Dosage: 200 MILLIGRAM, QD
     Route: 065
     Dates: start: 202306
  9. LAMOTRIGINE [Suspect]
     Active Substance: LAMOTRIGINE
     Indication: Seizure
     Dosage: 450 MILLIGRAM, QD
     Route: 065
     Dates: end: 202204
  10. LAMOTRIGINE [Suspect]
     Active Substance: LAMOTRIGINE
     Dosage: 400 MILLIGRAM, QD
     Route: 065
     Dates: start: 202204
  11. LAMOTRIGINE [Suspect]
     Active Substance: LAMOTRIGINE
     Dosage: 300 MILLIGRAM, QD
     Route: 065
     Dates: start: 202302
  12. LAMOTRIGINE [Suspect]
     Active Substance: LAMOTRIGINE
     Dosage: 400 MILLIGRAM, QD
     Route: 065
     Dates: start: 202305
  13. LAMOTRIGINE [Suspect]
     Active Substance: LAMOTRIGINE
     Dosage: 350 MILLIGRAM, QD
     Route: 065
     Dates: start: 202306
  14. BRIVARACETAM [Suspect]
     Active Substance: BRIVARACETAM
     Indication: Seizure
     Dosage: UNK
     Route: 065
  15. BRIVARACETAM [Suspect]
     Active Substance: BRIVARACETAM
     Dosage: 200 MILLIGRAM, QD
     Route: 065
     Dates: start: 202205
  16. BRIVARACETAM [Suspect]
     Active Substance: BRIVARACETAM
     Dosage: 300 MILLIGRAM, QD
     Route: 065
     Dates: start: 2022
  17. BRIVARACETAM [Suspect]
     Active Substance: BRIVARACETAM
     Dosage: 200 MILLIGRAM, QD
     Route: 065
     Dates: start: 202211
  18. VALPROIC ACID [Concomitant]
     Active Substance: VALPROIC ACID
     Indication: Seizure
     Dosage: 600 MILLIGRAM, QD
     Route: 065
     Dates: start: 202306

REACTIONS (16)
  - Suicide attempt [Recovered/Resolved]
  - Partial seizures with secondary generalisation [Unknown]
  - Overdose [Recovered/Resolved]
  - Increased appetite [Unknown]
  - Abnormal behaviour [Unknown]
  - Apathy [Unknown]
  - Impulsive behaviour [Unknown]
  - Educational problem [Recovered/Resolved]
  - Weight increased [Unknown]
  - Focal dyscognitive seizures [Unknown]
  - Memory impairment [Recovering/Resolving]
  - Fatigue [Recovered/Resolved]
  - Disturbance in attention [Unknown]
  - Diplopia [Recovered/Resolved]
  - Gait disturbance [Recovered/Resolved]
  - Depressed mood [Unknown]

NARRATIVE: CASE EVENT DATE: 20220101
